FAERS Safety Report 24178395 (Version 3)
Quarter: 2024Q4

REPORT INFORMATION
  Report Type: Spontaneous
  Country: CA (occurrence: CA)
  Receive Date: 20240806
  Receipt Date: 20241004
  Transmission Date: 20250114
  Serious: Yes (Hospitalization, Other)
  Sender: ACCORD
  Company Number: None

PATIENT
  Age: 89 Year
  Sex: Female

DRUGS (1)
  1. APIXABAN [Suspect]
     Active Substance: APIXABAN
     Indication: Anticoagulant therapy
     Dosage: 2 EVERY 1 DAYS
     Route: 048

REACTIONS (7)
  - Melaena [Unknown]
  - Back pain [Unknown]
  - Haematemesis [Unknown]
  - Lethargy [Unknown]
  - Upper gastrointestinal haemorrhage [Unknown]
  - Gastrointestinal disorder [Unknown]
  - Therapy interrupted [Unknown]
